FAERS Safety Report 9705635 (Version 1)
Quarter: 2013Q4

REPORT INFORMATION
  Report Type: Spontaneous
  Country: US (occurrence: US)
  Receive Date: 20131122
  Receipt Date: 20131122
  Transmission Date: 20140711
  Serious: No
  Sender: FDA-Public Use
  Company Number: US-GILEAD-2008-0017369

PATIENT
  Age: 52 Year
  Sex: Male
  Weight: 90.72 kg

DRUGS (6)
  1. LETAIRIS [Suspect]
     Indication: PULMONARY ARTERIAL HYPERTENSION
     Route: 048
     Dates: start: 20080519
  2. COZAAR [Concomitant]
     Route: 048
  3. PLAQUENIL [Concomitant]
     Route: 048
  4. PREDNISONE [Concomitant]
     Route: 048
  5. FOSAMAX [Concomitant]
     Route: 048
  6. CALTRATE 600 TAB + D [Concomitant]
     Route: 048

REACTIONS (1)
  - Oedema peripheral [None]
